FAERS Safety Report 5974753-5 (Version None)
Quarter: 2008Q4

REPORT INFORMATION
  Report Type: 
  Country: None (occurrence: None)
  Receive Date: 20081201
  Receipt Date: 20081128
  Transmission Date: 20090506
  Serious: Yes (Other)
  Sender: FDA-Public Use
  Company Number: CH-PFIZER INC-2008100566

PATIENT
  Age: 52 Year
  Sex: Female
  Weight: 59 kg

DRUGS (2)
  1. CHAMPIX [Suspect]
     Indication: SMOKING CESSATION THERAPY
     Route: 048
     Dates: start: 20080429, end: 20080728
  2. OMEPRAZOLE [Concomitant]
     Route: 048

REACTIONS (1)
  - HYPERTHYROIDISM [None]
